FAERS Safety Report 14217072 (Version 1)
Quarter: 2017Q4

REPORT INFORMATION
  Report Type: Spontaneous
  Country: FR (occurrence: FR)
  Receive Date: 20171122
  Receipt Date: 20171122
  Transmission Date: 20180321
  Serious: Yes (Other)
  Sender: FDA-Public Use
  Company Number: FR-MERCK KGAA-2034941

PATIENT
  Sex: Female

DRUGS (1)
  1. NOVOTHYROX [Suspect]
     Active Substance: LEVOTHYROXINE SODIUM
     Indication: PRODUCT USED FOR UNKNOWN INDICATION

REACTIONS (10)
  - Vertigo [None]
  - Renal pain [None]
  - Breast pain [None]
  - Eye disorder [None]
  - Arthralgia [None]
  - Contusion [None]
  - Muscle spasms [None]
  - Pain [None]
  - Nausea [None]
  - Angina pectoris [None]
